FAERS Safety Report 5003424-7 (Version None)
Quarter: 2006Q2

REPORT INFORMATION
  Report Type: 
  Country: None (occurrence: None)
  Receive Date: 20060511
  Receipt Date: 20060504
  Transmission Date: 20061013
  Serious: Yes (Hospitalization)
  Sender: FDA-Public Use
  Company Number: 2006-00942

PATIENT
  Age: 62 Year
  Sex: Female
  Weight: 80 kg

DRUGS (3)
  1. VELCADE [Suspect]
     Indication: MULTIPLE MYELOMA
     Dosage: 1.30 MG/M2, INTRAVENOUS
     Route: 042
     Dates: start: 20051125, end: 20060427
  2. DOXIL [Suspect]
     Indication: MULTIPLE MYELOMA
     Dosage: 30.O00 MG/M2, INTRAVENOUS
     Route: 042
     Dates: start: 20051125, end: 20060427
  3. CIPROFLOXACIN [Concomitant]

REACTIONS (3)
  - PNEUMONIA [None]
  - RHINITIS [None]
  - STAPHYLOCOCCAL SEPSIS [None]
